FAERS Safety Report 5223154-6 (Version None)
Quarter: 2007Q1

REPORT INFORMATION
  Report Type: 
  Country: None (occurrence: None)
  Receive Date: 20070125
  Receipt Date: 20070108
  Transmission Date: 20070707
  Serious: Yes (Hospitalization)
  Sender: FDA-Public Use
  Company Number: 235332

PATIENT
  Age: 71 Year
  Sex: Male
  Weight: 65 kg

DRUGS (8)
  1. HERCEPTIN [Suspect]
     Indication: GASTRIC CANCER
     Dosage: 520 MG, Q3W, INTRAVENOUS
     Route: 042
     Dates: start: 20061208
  2. CAPECITABINE (CAPECITABINE) [Suspect]
     Indication: GASTRIC CANCER
     Dosage: 3300 MG, QD, ORAL
     Route: 048
     Dates: start: 20061208
  3. CISPLATIN [Suspect]
     Indication: GASTRIC CANCER
     Dosage: 136 MG, Q3W, INTRAVENOUS
     Route: 042
     Dates: start: 20061208
  4. FERROUS CITRATE (SODIUM FERROUS CITRATE) [Concomitant]
  5. ZOLPIDEM TARTRATE [Concomitant]
  6. CONCOMITANT DRUG (GENERIC COMPONENT(S) NOT KNOWN) [Concomitant]
  7. DIFLUCORTOLONE (DIFLUCORTOLONE) [Concomitant]
  8. LIDOCAINE [Concomitant]

REACTIONS (2)
  - CONTUSION [None]
  - GOUT [None]
